FAERS Safety Report 6850030-5 (Version None)
Quarter: 2010Q3

REPORT INFORMATION
  Report Type: 
  Country: None (occurrence: None)
  Receive Date: 20100716
  Receipt Date: 20071009
  Transmission Date: 20110219
  Serious: No
  Sender: FDA-Public Use
  Company Number: US-PFIZER INC-2007085496

PATIENT
  Sex: Female
  Weight: 59 kg

DRUGS (12)
  1. CHANTIX [Suspect]
     Indication: SMOKING CESSATION THERAPY
     Route: 048
     Dates: start: 20070715
  2. PREMPRO [Concomitant]
  3. TOPROL-XL [Concomitant]
  4. NORVASC [Concomitant]
  5. LIPITOR [Concomitant]
  6. ZETIA [Concomitant]
  7. ISOSORBIDE [Concomitant]
  8. ACIPHEX [Concomitant]
  9. ADVAIR DISKUS 100/50 [Concomitant]
  10. SINEMET [Concomitant]
  11. COMBIVENT [Concomitant]
  12. DETROL LA [Concomitant]

REACTIONS (2)
  - ABNORMAL DREAMS [None]
  - NAUSEA [None]
